FAERS Safety Report 11616673 (Version 1)
Quarter: 2015Q4

REPORT INFORMATION
  Report Type: Spontaneous
  Country: FR (occurrence: FR)
  Receive Date: 20151009
  Receipt Date: 20151009
  Transmission Date: 20160304
  Serious: Yes (Hospitalization)
  Sender: FDA-Public Use
  Company Number: FR-INDIVIOR-INDV-083763-2015

PATIENT
  Age: 49 Year
  Sex: Male

DRUGS (4)
  1. SUBUTEX [Suspect]
     Active Substance: BUPRENORPHINE HYDROCHLORIDE
     Indication: PRODUCT USED FOR UNKNOWN INDICATION
     Dosage: 2.4 MG DAILY
     Route: 045
  2. ALCOHOL. [Suspect]
     Active Substance: ALCOHOL
     Indication: PRODUCT USED FOR UNKNOWN INDICATION
     Dosage: EVERY DAY (3 UNITS DAILY) FOR MORE THAN THIRTY YEARS INCLUDING WHISKY (20 UNITS WEEKLY)
     Route: 065
     Dates: end: 20150714
  3. COCAINE [Suspect]
     Active Substance: COCAINE
     Indication: PRODUCT USED FOR UNKNOWN INDICATION
     Dosage: UNK
     Route: 065
  4. CANNABIS AND RESIN [Suspect]
     Active Substance: CANNABIS SATIVA SUBSP. INDICA TOP
     Indication: PRODUCT USED FOR UNKNOWN INDICATION
     Dosage: ALMOST DAILY,ONE JOINT IN THE EVENING SINCE AGE OF 20
     Route: 065
     Dates: end: 20150714

REACTIONS (4)
  - Substance dependence [Recovering/Resolving]
  - Alcohol abuse [Unknown]
  - Intentional product use issue [Unknown]
  - Drug abuse [Recovering/Resolving]
